FAERS Safety Report 19814674 (Version 1)
Quarter: 2021Q3

REPORT INFORMATION
  Report Type: Spontaneous
  Country: US (occurrence: US)
  Receive Date: 20210910
  Receipt Date: 20210910
  Transmission Date: 20211014
  Serious: Yes (Other)
  Sender: FDA-Public Use
  Company Number: US-PFIZER INC-202101152411

PATIENT
  Age: 61 Year
  Sex: Female

DRUGS (1)
  1. IBRANCE [Suspect]
     Active Substance: PALBOCICLIB
     Dosage: 125 MG
     Dates: start: 20201001

REACTIONS (5)
  - Second primary malignancy [Unknown]
  - Alopecia [Unknown]
  - Taste disorder [Recovering/Resolving]
  - Nausea [Unknown]
  - Malignant melanoma [Unknown]

NARRATIVE: CASE EVENT DATE: 202010
